FAERS Safety Report 24019118 (Version 3)
Quarter: 2024Q4

REPORT INFORMATION
  Report Type: Spontaneous
  Country: US (occurrence: US)
  Receive Date: 20240627
  Receipt Date: 20241014
  Transmission Date: 20250114
  Serious: No
  Sender: SANDOZ
  Company Number: US-SANDOZ-SDZ2024US060753

PATIENT
  Sex: Male

DRUGS (1)
  1. ALBUTEROL SULFATE [Suspect]
     Active Substance: ALBUTEROL SULFATE
     Indication: Wheezing
     Dosage: DOSE=90 MCG/DOS,  DOSE/AMOUNT: 2 PUFFS
     Route: 055

REACTIONS (4)
  - Drug dose omission by device [Unknown]
  - Product dispensing issue [Unknown]
  - Device malfunction [Unknown]
  - Product delivery mechanism issue [Unknown]
